FAERS Safety Report 25584617 (Version 1)
Quarter: 2025Q3

REPORT INFORMATION
  Report Type: Report from Study
  Country: KR (occurrence: KR)
  Receive Date: 20250721
  Receipt Date: 20250721
  Transmission Date: 20251021
  Serious: Yes (Hospitalization)
  Sender: SUNOVION
  Company Number: KR-BIAL-BIAL-18833

PATIENT

DRUGS (10)
  1. ESLICARBAZEPINE ACETATE [Suspect]
     Active Substance: ESLICARBAZEPINE ACETATE
     Indication: Epilepsy
     Dosage: 400 MILLIGRAM, DAILY
     Route: 048
     Dates: start: 20240920, end: 20241112
  2. ESLICARBAZEPINE ACETATE [Suspect]
     Active Substance: ESLICARBAZEPINE ACETATE
     Dosage: 600 MILLIGRAM, DAILY
     Route: 048
     Dates: start: 20241113
  3. Epilatam [Concomitant]
     Indication: Epilepsy
     Route: 048
     Dates: start: 20240920
  4. Epilatam [Concomitant]
     Indication: Epilepsy
     Route: 048
     Dates: start: 20240920
  5. Solondo [Concomitant]
     Indication: Encephalitis viral
     Dosage: 1 DOSAGE FORM, DAILY
     Route: 048
     Dates: start: 20241001, end: 20241205
  6. Mucosta sr [Concomitant]
     Indication: Encephalitis viral
     Route: 048
     Dates: start: 20241001, end: 20241205
  7. Esomezol [Concomitant]
     Indication: Encephalitis viral
     Dosage: 1 DOSAGE FORM, DAILY
     Route: 048
     Dates: start: 20241001, end: 20241205
  8. Coughjin [Concomitant]
     Indication: Oropharyngeal pain
     Route: 048
     Dates: start: 20241001, end: 20241004
  9. DIAZEPAM [Concomitant]
     Active Substance: DIAZEPAM
     Indication: Encephalitis viral
     Dosage: 0.5 DOSAGE FORM, DAILY
     Route: 042
     Dates: start: 20240920, end: 20240929
  10. DIAZEPAM [Concomitant]
     Active Substance: DIAZEPAM
     Route: 040
     Dates: start: 20240920, end: 20240929

REACTIONS (5)
  - Encephalitis [Recovered/Resolved]
  - Oropharyngeal pain [Recovered/Resolved]
  - Rash [Recovering/Resolving]
  - Underdose [Not Recovered/Not Resolved]
  - Drug titration error [Not Recovered/Not Resolved]

NARRATIVE: CASE EVENT DATE: 20240101
